FAERS Safety Report 8139944-6 (Version None)
Quarter: 2012Q1

REPORT INFORMATION
  Report Type: 
  Country: None (occurrence: None)
  Receive Date: 20120215
  Receipt Date: 20120207
  Transmission Date: 20120608
  Serious: Yes (Other)
  Sender: FDA-Public Use
  Company Number: CA-ROCHE-1032037

PATIENT
  Sex: Female

DRUGS (4)
  1. ADVAIR DISKUS 100/50 [Concomitant]
  2. QVAR 40 [Concomitant]
  3. XOLAIR [Suspect]
     Indication: ASTHMA
     Route: 058
     Dates: start: 20091209
  4. VENTOLIN [Concomitant]

REACTIONS (11)
  - FATIGUE [None]
  - ARRHYTHMIA [None]
  - HOT FLUSH [None]
  - HEADACHE [None]
  - TACHYCARDIA [None]
  - DYSPNOEA [None]
  - VISUAL IMPAIRMENT [None]
  - PALPITATIONS [None]
  - BLOOD PRESSURE INCREASED [None]
  - DIZZINESS [None]
  - PRODUCTIVE COUGH [None]
